FAERS Safety Report 9540311 (Version 2)
Quarter: 2013Q3

REPORT INFORMATION
  Report Type: Spontaneous
  Country: JP (occurrence: JP)
  Receive Date: 20130920
  Receipt Date: 20130927
  Transmission Date: 20140515
  Serious: Yes (Other)
  Sender: FDA-Public Use
  Company Number: JP-ASTRAZENECA-2013SE69221

PATIENT
  Age: 42 Year
  Sex: Female
  Weight: 64 kg

DRUGS (9)
  1. PROPOFOL (NON-AZ PRODUCT) [Suspect]
     Indication: INDUCTION OF ANAESTHESIA
     Route: 042
  2. FENTANYL [Suspect]
     Indication: MAINTENANCE OF ANAESTHESIA
     Route: 042
  3. FENTANYL [Suspect]
     Indication: POSTOPERATIVE ANALGESIA
     Route: 042
  4. FENTANYL [Suspect]
     Indication: MAINTENANCE OF ANAESTHESIA
     Route: 042
  5. FENTANYL [Suspect]
     Indication: POSTOPERATIVE ANALGESIA
     Route: 042
  6. REMIFENTANIL HYDROCHLORIDE [Suspect]
     Indication: MAINTENANCE OF ANAESTHESIA
     Route: 042
  7. ROCURONIUM BROMIDE [Concomitant]
     Indication: INDUCTION OF ANAESTHESIA
     Route: 042
  8. SEVOFLURANE [Concomitant]
     Indication: MAINTENANCE OF ANAESTHESIA
  9. HYDROXYETHYLATED STARCH [Concomitant]
     Indication: MAINTENANCE OF ANAESTHESIA
     Route: 042

REACTIONS (1)
  - Coma [Recovering/Resolving]
